FAERS Safety Report 6335877-6 (Version None)
Quarter: 2009Q3

REPORT INFORMATION
  Report Type: 
  Country: None (occurrence: None)
  Receive Date: 20090828
  Receipt Date: 20090820
  Transmission Date: 20100115
  Serious: Yes (Hospitalization)
  Sender: FDA-Public Use
  Company Number: GXKR2009AT09472

PATIENT
  Age: 67 Year
  Sex: Male

DRUGS (2)
  1. AZITHROMYCIN                (AZITHROMYCIN)  FILM-COATED TABLET, 500MG [Suspect]
     Indication: RESPIRATORY TRACT INFECTION
     Dosage: 500 MG, QD, ORAL
     Route: 048
     Dates: start: 20090725, end: 20090727
  2. MUCOBENE        (ACETYLCYSTEINE)  EFFERVESCENT TABLET [Concomitant]

REACTIONS (1)
  - ATRIAL FIBRILLATION [None]
